FAERS Safety Report 19074573 (Version 3)
Quarter: 2021Q2

REPORT INFORMATION
  Report Type: Report from Study
  Country: US (occurrence: US)
  Receive Date: 20210330
  Receipt Date: 20210626
  Transmission Date: 20210717
  Serious: Yes (Other)
  Sender: FDA-Public Use
  Company Number: US-TAKEDA-2020TUS044722

PATIENT
  Sex: Male

DRUGS (1)
  1. HUMAN NORMAL IMMUNOGLOBULIN; LIQUID [Suspect]
     Active Substance: HUMAN IMMUNOGLOBULIN G
     Indication: IMMUNODEFICIENCY COMMON VARIABLE
     Dosage: UNK
     Route: 042

REACTIONS (7)
  - Pain [Unknown]
  - Tremor [Unknown]
  - Back pain [Unknown]
  - Hemiparesis [Unknown]
  - Feeling cold [Unknown]
  - Product availability issue [Unknown]
  - Inappropriate schedule of product administration [Unknown]
